FAERS Safety Report 10006054 (Version 1)
Quarter: 2014Q1

REPORT INFORMATION
  Report Type: Spontaneous
  Country: US (occurrence: US)
  Receive Date: 20140313
  Receipt Date: 20140313
  Transmission Date: 20141002
  Serious: No
  Sender: FDA-Public Use
  Company Number: US-JNJFOC-20140213999

PATIENT
  Age: 66 Year
  Sex: Female
  Weight: 81.65 kg

DRUGS (3)
  1. INVEGA SUSTENNA [Suspect]
     Indication: SCHIZOPHRENIA
     Route: 030
     Dates: start: 201201
  2. LAMICTAL [Concomitant]
     Indication: CONVULSION
     Route: 048
     Dates: start: 2011
  3. LABETALOL [Concomitant]
     Indication: BLOOD PRESSURE
     Route: 048
     Dates: start: 2010

REACTIONS (3)
  - Drug dose omission [Not Recovered/Not Resolved]
  - Device leakage [Unknown]
  - Product quality issue [Unknown]
